FAERS Safety Report 8167152-1 (Version None)
Quarter: 2012Q1

REPORT INFORMATION
  Report Type: 
  Country: None (occurrence: None)
  Receive Date: 20120227
  Receipt Date: 20120221
  Transmission Date: 20120608
  Serious: Yes (Hospitalization, Other)
  Sender: FDA-Public Use
  Company Number: US-ACTELION-A-NJ2012-61100

PATIENT

DRUGS (3)
  1. REVATIO [Concomitant]
  2. TRACLEER [Suspect]
     Indication: PULMONARY ARTERIAL HYPERTENSION
     Dosage: UNK
     Route: 048
     Dates: start: 20100408
  3. COUMADIN [Concomitant]

REACTIONS (3)
  - LARGE INTESTINAL HAEMORRHAGE [None]
  - GASTROINTESTINAL ARTERIOVENOUS MALFORMATION [None]
  - AORTIC VALVE REPLACEMENT [None]
